FAERS Safety Report 11355311 (Version 1)
Quarter: 2015Q3

REPORT INFORMATION
  Report Type: Spontaneous
  Country: CA (occurrence: CA)
  Receive Date: 20150807
  Receipt Date: 20150807
  Transmission Date: 20151125
  Serious: Yes (Hospitalization)
  Sender: FDA-Public Use
  Company Number: PHHY2015CA092336

PATIENT
  Sex: Female

DRUGS (3)
  1. SOMATULINE//LANREOTIDE [Suspect]
     Active Substance: LANREOTIDE ACETATE
     Indication: CARCINOID SYNDROME
     Dosage: 120 MG, BIW
     Route: 058
  2. SANDOSTATIN LAR DEPOT [Suspect]
     Active Substance: OCTREOTIDE ACETATE
     Indication: CARCINOID SYNDROME
     Dosage: 60 MG, BIW
     Route: 030
  3. OCTREOTIDE. [Suspect]
     Active Substance: OCTREOTIDE
     Indication: CARCINOID SYNDROME
     Dosage: ONCE/SINGLE TEST DOSE
     Route: 058

REACTIONS (4)
  - Intestinal obstruction [Unknown]
  - Calcification of muscle [Unknown]
  - Dehydration [Unknown]
  - Diarrhoea [Unknown]
